FAERS Safety Report 23137897 (Version 3)
Quarter: 2023Q4

REPORT INFORMATION
  Report Type: Report from Study
  Country: US (occurrence: US)
  Receive Date: 20231102
  Receipt Date: 20231203
  Transmission Date: 20240110
  Serious: No
  Sender: FDA-Public Use
  Company Number: US-002147023-NVSC2023US233861

PATIENT
  Age: 75 Year
  Sex: Female

DRUGS (2)
  1. KISQALI [Suspect]
     Active Substance: RIBOCICLIB
     Indication: Product used for unknown indication
     Dosage: 600 MG, QD
     Route: 048
     Dates: start: 20231027
  2. KISQALI [Suspect]
     Active Substance: RIBOCICLIB
     Dosage: 400 MG, BID
     Route: 065

REACTIONS (11)
  - Abdominal discomfort [Unknown]
  - Eating disorder [Unknown]
  - Abdominal pain upper [Unknown]
  - Dyspepsia [Unknown]
  - Decreased appetite [Unknown]
  - Diarrhoea [Unknown]
  - White blood cell count decreased [Unknown]
  - Chest discomfort [Unknown]
  - Sinus disorder [Unknown]
  - Nasal congestion [Recovered/Resolved with Sequelae]
  - Lower respiratory tract congestion [Unknown]

NARRATIVE: CASE EVENT DATE: 20231102
